FAERS Safety Report 7249445-5 (Version None)
Quarter: 2011Q1

REPORT INFORMATION
  Report Type: 
  Country: None (occurrence: None)
  Receive Date: 20110128
  Receipt Date: 20110119
  Transmission Date: 20110831
  Serious: Yes (Other)
  Sender: FDA-Public Use
  Company Number: PHHY2010JP88430

PATIENT
  Sex: Male
  Weight: 94 kg

DRUGS (6)
  1. OLMETEC [Concomitant]
     Indication: HYPERTENSION
     Dosage: 40 MG DAILY
     Route: 048
     Dates: start: 20060101
  2. SHAKUYAKUKANZOUTOU [Concomitant]
     Dosage: 2 DF, UNK
     Dates: start: 20060101
  3. RASILEZ [Suspect]
     Indication: HYPERTENSION
     Dosage: 150 MG DAILY
     Route: 048
     Dates: start: 20101001, end: 20101008
  4. CALBLOCK [Concomitant]
     Indication: HYPERTENSION
     Dosage: 16 MG DAILY
     Route: 048
     Dates: start: 20060101
  5. URINORM [Concomitant]
     Indication: HYPERURICAEMIA
     Dosage: UNK
     Route: 048
     Dates: start: 20080101
  6. NORVASC [Concomitant]
     Dosage: UNK
     Dates: start: 20050101, end: 20060101

REACTIONS (2)
  - HYPERHIDROSIS [None]
  - CONDITION AGGRAVATED [None]
